FAERS Safety Report 24932512 (Version 1)
Quarter: 2025Q1

REPORT INFORMATION
  Report Type: Report from Study
  Country: JP (occurrence: JP)
  Receive Date: 20250205
  Receipt Date: 20250205
  Transmission Date: 20250408
  Serious: No
  Sender: EXELIXIS
  Company Number: JP-TAKEDA-2024TJP012137

PATIENT
  Age: 86 Year
  Sex: Male
  Weight: 58 kg

DRUGS (12)
  1. CABOMETYX [Suspect]
     Active Substance: CABOZANTINIB S-MALATE
     Indication: Hepatocellular carcinoma
     Route: 065
     Dates: start: 20230803, end: 20230821
  2. CABOMETYX [Suspect]
     Active Substance: CABOZANTINIB S-MALATE
     Route: 065
     Dates: start: 20230918, end: 20231015
  3. CABOMETYX [Suspect]
     Active Substance: CABOZANTINIB S-MALATE
     Route: 065
     Dates: start: 20231128, end: 20231201
  4. CABOMETYX [Suspect]
     Active Substance: CABOZANTINIB S-MALATE
     Route: 065
     Dates: start: 20240122, end: 20240303
  5. CABOMETYX [Suspect]
     Active Substance: CABOZANTINIB S-MALATE
     Route: 065
     Dates: start: 20240402, end: 20240429
  6. CABOMETYX [Suspect]
     Active Substance: CABOZANTINIB S-MALATE
     Dates: start: 20240605
  7. DURVALUMAB [Concomitant]
     Active Substance: DURVALUMAB
     Indication: Hepatocellular carcinoma
     Route: 065
     Dates: start: 202305, end: 202307
  8. DURVALUMAB [Concomitant]
     Active Substance: DURVALUMAB
     Route: 065
     Dates: start: 20230907, end: 20230907
  9. DURVALUMAB [Concomitant]
     Active Substance: DURVALUMAB
     Route: 065
     Dates: start: 20231113, end: 20231113
  10. DURVALUMAB [Concomitant]
     Active Substance: DURVALUMAB
     Route: 065
     Dates: start: 20240110, end: 20240110
  11. DURVALUMAB [Concomitant]
     Active Substance: DURVALUMAB
     Route: 065
     Dates: start: 20240311, end: 20240311
  12. DURVALUMAB [Concomitant]
     Active Substance: DURVALUMAB
     Route: 065
     Dates: start: 20240507, end: 20240507

REACTIONS (2)
  - Prescribed underdose [Unknown]
  - No adverse event [Unknown]

NARRATIVE: CASE EVENT DATE: 20230918
